FAERS Safety Report 9990688 (Version 1)
Quarter: 2014Q1

REPORT INFORMATION
  Report Type: Report from Study
  Country: US (occurrence: US)
  Receive Date: 20140310
  Receipt Date: 20140310
  Transmission Date: 20141002
  Serious: No
  Sender: FDA-Public Use
  Company Number: US-ABBVIE-13P-163-1135318-00

PATIENT
  Age: 63 Year
  Sex: Female

DRUGS (6)
  1. HUMIRA [Suspect]
     Indication: RHEUMATOID ARTHRITIS
  2. METHOTREXATE [Concomitant]
     Indication: RHEUMATOID ARTHRITIS
     Dosage: 4 WEEKLY
  3. VITAMIN D [Concomitant]
     Indication: VITAMIN D DECREASED
     Dosage: 50000 UNITS WEEKLY
  4. FOLIC ACID [Concomitant]
     Indication: PROPHYLAXIS
  5. CITRACAL [Concomitant]
     Indication: MINERAL SUPPLEMENTATION
     Dosage: DAILY
  6. RECLAST [Concomitant]
     Indication: OSTEOPOROSIS

REACTIONS (3)
  - Lip swelling [Recovering/Resolving]
  - Local swelling [Recovering/Resolving]
  - Eye swelling [Recovered/Resolved]
